FAERS Safety Report 20523920 (Version 4)
Quarter: 2022Q3

REPORT INFORMATION
  Report Type: Spontaneous
  Country: US (occurrence: US)
  Receive Date: 20220228
  Receipt Date: 20220923
  Transmission Date: 20221027
  Serious: No
  Sender: FDA-Public Use
  Company Number: US-GLAXOSMITHKLINE-US2022AMR033796

PATIENT
  Sex: Female

DRUGS (5)
  1. BENLYSTA [Suspect]
     Active Substance: BELIMUMAB
     Indication: Systemic lupus erythematosus
     Dosage: 10 MG/KG, Z EVERY 4 WEEKS (120MG VIAL + 400MG VIAL)1-2 YEARS (882MG)
     Route: 042
  2. BENLYSTA [Suspect]
     Active Substance: BELIMUMAB
     Dosage: 10 MG/KG, Z EVERY 4 WEEKS (120MG VIAL + 400MG VIAL)1-2 YEARS (882MG)
     Route: 042
  3. BENLYSTA [Suspect]
     Active Substance: BELIMUMAB
     Dosage: 400 MG, Z, INFUSE 882MG (10MG/KG)  EVERY 4
     Route: 042
  4. BENLYSTA [Suspect]
     Active Substance: BELIMUMAB
     Dosage: 400 MG, Z, INFUSE 882MG (10MG/KG)EVERY 4 WEEKS
     Route: 042
  5. TYLENOL [Concomitant]
     Active Substance: ACETAMINOPHEN
     Indication: Product used for unknown indication
     Dosage: UNK

REACTIONS (7)
  - Lip swelling [Recovered/Resolved]
  - Urticaria [Recovered/Resolved]
  - Adverse drug reaction [Unknown]
  - Headache [Unknown]
  - Malaise [Unknown]
  - Drug hypersensitivity [Unknown]
  - Drug ineffective [Unknown]
